FAERS Safety Report 7362776-3 (Version None)
Quarter: 2011Q1

REPORT INFORMATION
  Report Type: 
  Country: None (occurrence: None)
  Receive Date: 20110321
  Receipt Date: 20110310
  Transmission Date: 20110831
  Serious: No
  Sender: FDA-Public Use
  Company Number: US-BIOGENIDEC-2011BI003673

PATIENT
  Age: 30 Year
  Sex: Female

DRUGS (2)
  1. AVONEX [Concomitant]
     Indication: MULTIPLE SCLEROSIS
     Route: 030
     Dates: start: 20070925
  2. TYSABRI [Suspect]
     Indication: MULTIPLE SCLEROSIS
     Route: 042
     Dates: start: 20110113

REACTIONS (14)
  - FATIGUE [None]
  - NERVOUS SYSTEM DISORDER [None]
  - LOSS OF CONSCIOUSNESS [None]
  - SWELLING [None]
  - GLARE [None]
  - HYPERSOMNIA [None]
  - MULTIPLE SCLEROSIS RELAPSE [None]
  - MOBILITY DECREASED [None]
  - HEADACHE [None]
  - BALANCE DISORDER [None]
  - SKIN LESION [None]
  - NAUSEA [None]
  - SKIN TIGHTNESS [None]
  - DEPRESSION [None]
